FAERS Safety Report 10686946 (Version 3)
Quarter: 2015Q1

REPORT INFORMATION
  Report Type: Spontaneous
  Country: US (occurrence: US)
  Receive Date: 20150102
  Receipt Date: 20150216
  Transmission Date: 20150720
  Serious: Yes (Other)
  Sender: FDA-Public Use
  Company Number: US-BEH-2014047511

PATIENT
  Sex: Female

DRUGS (34)
  1. BENADRYL [Concomitant]
     Active Substance: DIPHENHYDRAMINE HYDROCHLORIDE
     Indication: HYPERSENSITIVITY
     Dosage: EVERY 4 HOURS
     Route: 042
  2. PRILOSEC [Concomitant]
     Active Substance: OMEPRAZOLE MAGNESIUM
     Indication: GASTROINTESTINAL DISORDER
     Dosage: MORNING
  3. VITAMIN D [Concomitant]
     Active Substance: CHOLECALCIFEROL
     Indication: VITAMIN D DEFICIENCY
     Dosage: LUNCH
  4. NOVOLOG INSULIN [Concomitant]
     Dosage: SLIDING SCALE:BREAKFAST, LUNCH, DINNER
  5. PREDNISONE. [Concomitant]
     Active Substance: PREDNISONE
     Indication: ASTHMA
     Dosage: MORNING
  6. SYNTHROID [Concomitant]
     Active Substance: LEVOTHYROXINE SODIUM
     Indication: HYPOTHYROIDISM
     Dosage: AFTERNOON
  7. THEOPHYLLINE ER [Concomitant]
     Active Substance: THEOPHYLLINE ANHYDROUS
     Indication: RESPIRATORY DISORDER
     Dosage: MORNING, EVENING
  8. SUDAFED [Concomitant]
     Active Substance: PSEUDOEPHEDRINE HYDROCHLORIDE
     Indication: NASAL CONGESTION
     Dosage: MORNING,AFTERNOON, BED
  9. NOVOLOG INSULIN [Concomitant]
     Dosage: BREAKFAST
  10. NOVOLOG INSULIN [Concomitant]
     Dosage: LUNCH
  11. PREDNISONE. [Concomitant]
     Active Substance: PREDNISONE
     Indication: RHEUMATOID ARTHRITIS
     Dosage: MORNING
  12. TYLENOL ES [Concomitant]
     Indication: PAIN
     Dosage: AS NEEDED
  13. ZYRTEC [Concomitant]
     Active Substance: CETIRIZINE HYDROCHLORIDE
     Dosage: 3 X DAILY ON IVIG DAYS (MORNING,AFTERNOON AND BED)
  14. FENOFIBRATE. [Concomitant]
     Active Substance: FENOFIBRATE
     Indication: BLOOD TRIGLYCERIDES INCREASED
     Dosage: LUNCH
  15. PEPCID [Concomitant]
     Active Substance: FAMOTIDINE
     Indication: PRURITUS
     Dosage: MORNING, AFTERNOON WITH MS CONTIN
  16. PRIVIGEN [Suspect]
     Active Substance: HUMAN IMMUNOGLOBULIN G
     Dosage: CURRENT DOSE;15 GM EVERY MONDAY AND TUESDAY, 20 GM THURSDAY
  17. MS CONTIN [Concomitant]
     Active Substance: MORPHINE SULFATE
     Indication: PAIN
     Dosage: MORNING AFTERNOON AND BED
  18. PHENERGAN [Concomitant]
     Active Substance: PROMETHAZINE HYDROCHLORIDE
     Indication: NAUSEA
     Dosage: BREAKFAST
  19. NITROGLYCERIN. [Concomitant]
     Active Substance: NITROGLYCERIN
     Indication: CHEST PAIN
     Dosage: AS NEEDED
  20. TYLENOL [Concomitant]
     Active Substance: ACETAMINOPHEN
  21. COREG [Concomitant]
     Active Substance: CARVEDILOL
     Dosage: MORNING
  22. COREG [Concomitant]
     Active Substance: CARVEDILOL
     Indication: HYPERTENSION
     Dosage: EVENING
  23. OXYCODONE [Concomitant]
     Active Substance: OXYCODONE
     Indication: PAIN
     Dosage: 3X DAILY MORNING AS NEEDED: MORNING, AFTERNOON, BED TIME
  24. MIRALAX [Concomitant]
     Active Substance: POLYETHYLENE GLYCOL 3350
     Indication: CONSTIPATION
     Dosage: LUNCH
  25. METFORMIN [Concomitant]
     Active Substance: METFORMIN HYDROCHLORIDE
     Indication: DIABETES MELLITUS
     Dosage: BREAKFAST, DINNER
  26. DRAMAMINE [Concomitant]
     Active Substance: DIMENHYDRINATE
     Indication: NAUSEA
     Dosage: AS NEEDED
  27. ATROVENT [Concomitant]
     Active Substance: IPRATROPIUM BROMIDE
     Dosage: SOLUTION FOR NEBULIZER AS NEEDED
  28. PRIVIGEN [Suspect]
     Active Substance: HUMAN IMMUNOGLOBULIN G
     Indication: IMMUNODEFICIENCY COMMON VARIABLE
     Dosage: INITIAL DOSE
     Dates: start: 20130701
  29. BENADRYL [Concomitant]
     Active Substance: DIPHENHYDRAMINE HYDROCHLORIDE
     Indication: PREMEDICATION
  30. PROZAC [Concomitant]
     Active Substance: FLUOXETINE HYDROCHLORIDE
     Indication: DEPRESSION
     Dosage: LUNCH
  31. ALBUTEROL. [Concomitant]
     Active Substance: ALBUTEROL
     Indication: RESPIRATORY DISORDER
     Dosage: 2 PUFFS AT LEAST TWO TIMES DAILY;MORNING, BED AND AS NEEDED
     Route: 055
  32. LANTUS [Concomitant]
     Active Substance: INSULIN GLARGINE
     Indication: DIABETES MELLITUS
     Dosage: BREAKFAST
  33. SOLU-MEDROL [Concomitant]
     Active Substance: METHYLPREDNISOLONE SODIUM SUCCINATE
     Indication: PREMEDICATION
     Route: 042
  34. FLEXERIL [Concomitant]
     Active Substance: CYCLOBENZAPRINE HYDROCHLORIDE
     Dosage: BED

REACTIONS (1)
  - Cellulitis [Recovered/Resolved]
